FAERS Safety Report 8544072-1 (Version None)
Quarter: 2012Q3

REPORT INFORMATION
  Report Type: 
  Country: None (occurrence: None)
  Receive Date: 20120727
  Receipt Date: 20120717
  Transmission Date: 20120928
  Serious: Yes (Hospitalization)
  Sender: FDA-Public Use
  Company Number: FR-FRI-1000037352

PATIENT
  Age: 63 Year
  Sex: Female

DRUGS (4)
  1. HALDOL [Suspect]
     Dosage: 20 MG/ML
     Route: 048
  2. ESCITALOPRAM [Suspect]
     Indication: DEPRESSION
     Dosage: 10 MG
     Route: 048
     Dates: start: 20120201, end: 20120208
  3. ESCITALOPRAM [Suspect]
     Route: 048
     Dates: start: 20120210
  4. TRAMADOL HYDROCHLORIDE [Suspect]
     Route: 048
     Dates: end: 20120208

REACTIONS (4)
  - TREMOR [None]
  - HYPERREFLEXIA [None]
  - DRUG INTERACTION [None]
  - TACHYCARDIA [None]
